FAERS Safety Report 8890152 (Version 1)
Quarter: 2012Q4

REPORT INFORMATION
  Report Type: Spontaneous
  Country: US (occurrence: None)
  Receive Date: 20121105
  Receipt Date: 20121105
  Transmission Date: 20130627
  Serious: Yes (Life-Threatening, Hospitalization)
  Sender: FDA-Public Use
  Company Number: None

PATIENT
  Age: 62 Year
  Sex: Female
  Weight: 63.5 kg

DRUGS (2)
  1. LAMICTAL [Suspect]
     Indication: DEPRESSION
     Dosage: 200 mg daily po
     Route: 048
     Dates: start: 20120115, end: 20120703
  2. LAMICTAL [Suspect]
     Indication: BIPOLAR DISORDER
     Dosage: 200 mg daily po
     Route: 048
     Dates: start: 20120115, end: 20120703

REACTIONS (7)
  - Depression [None]
  - Mood swings [None]
  - Anger [None]
  - Paranoia [None]
  - Suicidal ideation [None]
  - Respiratory arrest [None]
  - Intentional overdose [None]
